FAERS Safety Report 23879458 (Version 1)
Quarter: 2024Q2

REPORT INFORMATION
  Report Type: Spontaneous
  Country: US (occurrence: US)
  Receive Date: 20240521
  Receipt Date: 20240521
  Transmission Date: 20240716
  Serious: Yes (Death)
  Sender: FDA-Public Use
  Company Number: US-PFIZER INC-202400172535

PATIENT
  Age: 36 Year
  Sex: Male

DRUGS (3)
  1. LORBRENA [Suspect]
     Active Substance: LORLATINIB
     Dosage: TAKE 1 TABLET BY MOUTH ONCE DAILY, WITH OR WITHOUT FOOD
     Route: 048
  2. OXYCODONE HYDROCHLORIDE [Concomitant]
     Active Substance: OXYCODONE HYDROCHLORIDE
     Dosage: UNK
  3. MS CONTIN [Concomitant]
     Active Substance: MORPHINE SULFATE
     Dosage: UNK

REACTIONS (1)
  - Death [Fatal]

NARRATIVE: CASE EVENT DATE: 20240429
